FAERS Safety Report 11660684 (Version 1)
Quarter: 2015Q4

REPORT INFORMATION
  Report Type: Spontaneous
  Country: US (occurrence: None)
  Receive Date: 20151023
  Receipt Date: 20151023
  Transmission Date: 20160304
  Serious: Yes (Life-Threatening)
  Sender: FDA-Public Use
  Company Number: None

PATIENT
  Age: 56 Year
  Sex: Male
  Weight: 100 kg

DRUGS (1)
  1. PROTAMINE SULFATE. [Suspect]
     Active Substance: PROTAMINE SULFATE
     Indication: PROCOAGULANT THERAPY
     Dosage: OTHER
     Route: 042
     Dates: start: 20150710

REACTIONS (4)
  - Anaphylactic reaction [None]
  - Bronchospasm [None]
  - Hypotension [None]
  - Ventricular tachycardia [None]

NARRATIVE: CASE EVENT DATE: 20150710
